FAERS Safety Report 6160506-4 (Version None)
Quarter: 2009Q2

REPORT INFORMATION
  Report Type: 
  Country: None (occurrence: None)
  Receive Date: 20090415
  Receipt Date: 20090415
  Transmission Date: 20091009
  Serious: Yes (Hospitalization)
  Sender: FDA-Public Use
  Company Number: None

PATIENT
  Age: 68 Year
  Sex: Female
  Weight: 53.5244 kg

DRUGS (6)
  1. CLOFARABINE [Suspect]
     Indication: NON-HODGKIN'S LYMPHOMA
     Dosage: 4MG/M2 DAILY X 5 DAYS IV EVERY 28 DAYS
     Route: 042
     Dates: start: 20090209, end: 20090408
  2. DURAGESIC-100 [Concomitant]
  3. TRIMETHOPRIM-SULFAMETHOXAZOLE (BACTRIM SS) [Concomitant]
  4. ZYLOPRIM [Concomitant]
  5. COUMADIN [Concomitant]
  6. DIFLUCAN [Concomitant]

REACTIONS (1)
  - FEBRILE NEUTROPENIA [None]
